FAERS Safety Report 25768294 (Version 1)
Quarter: 2025Q3

REPORT INFORMATION
  Report Type: Spontaneous
  Country: US (occurrence: US)
  Receive Date: 20250905
  Receipt Date: 20250905
  Transmission Date: 20251021
  Serious: No
  Sender: DOMPE FARMACEUTICI
  Company Number: US-FARMAPROD-202506-1998

PATIENT
  Sex: Female

DRUGS (16)
  1. OXERVATE [Suspect]
     Active Substance: CENEGERMIN-BKBJ
     Indication: Neurotrophic keratopathy
     Route: 047
     Dates: start: 20250520
  2. MULTIVITAMIN 50 PLUS [Concomitant]
  3. LEVOTHYROXINE SODIUM [Concomitant]
     Active Substance: LEVOTHYROXINE SODIUM
  4. IVIZIA [Concomitant]
     Active Substance: POVIDONE
  5. CALCIUM [Concomitant]
     Active Substance: CALCIUM
  6. PROBIOTIC 10B [Concomitant]
  7. FISH OIL [Concomitant]
     Active Substance: FISH OIL
  8. COENZYME Q10 [Concomitant]
     Active Substance: DIETARY SUPPLEMENT\UBIDECARENONE
  9. MINERALS\VITAMINS [Concomitant]
     Active Substance: MINERALS\VITAMINS
  10. VITAMIN D 400 [Concomitant]
  11. SELENIUM [Concomitant]
     Active Substance: SELENIUM
  12. MELOXICAM [Concomitant]
     Active Substance: MELOXICAM
  13. SIMVASTATIN [Concomitant]
     Active Substance: SIMVASTATIN
  14. HYDROXYCHLOROQUINE SULFATE [Concomitant]
     Active Substance: HYDROXYCHLOROQUINE SULFATE
  15. PILOCARPINE HYDROCHLORIDE [Concomitant]
     Active Substance: PILOCARPINE HYDROCHLORIDE
  16. METHOTREXATE [Concomitant]
     Active Substance: METHOTREXATE

REACTIONS (1)
  - Eye pain [Unknown]
